FAERS Safety Report 20976465 (Version 1)
Quarter: 2022Q2

REPORT INFORMATION
  Report Type: Spontaneous
  Country: US (occurrence: None)
  Receive Date: 20220617
  Receipt Date: 20220617
  Transmission Date: 20220721
  Serious: Yes (Other)
  Sender: FDA-Public Use
  Company Number: None

PATIENT
  Sex: Male

DRUGS (12)
  1. HUMIRA [Suspect]
     Active Substance: ADALIMUMAB
     Indication: Rheumatoid arthritis
     Dates: start: 20190924
  2. AMLODIPINE [Concomitant]
  3. BACLOFEN [Concomitant]
  4. DICLOFEN POT [Concomitant]
  5. LYRICA CAP [Concomitant]
  6. METFORMIN TAB [Concomitant]
  7. METHOTREXATE [Concomitant]
     Active Substance: METHOTREXATE
  8. MULTI-VTAMIN TAB [Concomitant]
  9. OMEPRAZOLE TAB [Concomitant]
  10. ROPINIROLE TAB [Concomitant]
  11. SIMVASTATIN [Concomitant]
  12. VITAMIN D3 [Concomitant]
     Active Substance: CHOLECALCIFEROL

REACTIONS (2)
  - Surgery [None]
  - Therapy interrupted [None]
